FAERS Safety Report 7555615-9 (Version None)
Quarter: 2011Q2

REPORT INFORMATION
  Report Type: 
  Country: None (occurrence: None)
  Receive Date: 20110617
  Receipt Date: 20010510
  Transmission Date: 20111010
  Serious: Yes (Other)
  Sender: FDA-Public Use
  Company Number: PHEH2001US04255

PATIENT
  Sex: Female

DRUGS (3)
  1. EXELON [Suspect]
     Indication: DEMENTIA ALZHEIMER'S TYPE
     Dosage: 1.5 MG, BID
     Route: 048
     Dates: start: 20010314
  2. PLAVIX [Concomitant]
  3. ASPIRIN [Concomitant]
     Dosage: UNK, UNK

REACTIONS (5)
  - MASKED FACIES [None]
  - HEADACHE [None]
  - DISORIENTATION [None]
  - BLOOD PRESSURE FLUCTUATION [None]
  - DYSARTHRIA [None]
